FAERS Safety Report 15300185 (Version 2)
Quarter: 2018Q3

REPORT INFORMATION
  Report Type: Spontaneous
  Country: US (occurrence: US)
  Receive Date: 20180821
  Receipt Date: 20180827
  Transmission Date: 20181010
  Serious: No
  Sender: FDA-Public Use
  Company Number: US-PFIZER INC-2018333900

PATIENT
  Age: 52 Year
  Sex: Male
  Weight: 63.5 kg

DRUGS (2)
  1. TAPAZOLE [Suspect]
     Active Substance: METHIMAZOLE
     Indication: HYPERTHYROIDISM
     Dosage: 5 MG, CYCLIC (THREE TIMES A WEEK)
     Route: 048
  2. TAPAZOLE [Suspect]
     Active Substance: METHIMAZOLE
     Dosage: WILL TAKE LIKE 7.5 THAT WAS ONE TABLET AND HALF A TABLET

REACTIONS (2)
  - Swelling face [Not Recovered/Not Resolved]
  - Peripheral swelling [Unknown]
